FAERS Safety Report 9116097 (Version 6)
Quarter: 2013Q2

REPORT INFORMATION
  Report Type: Spontaneous
  Country: JP (occurrence: JP)
  Receive Date: 20130207
  Receipt Date: 20130520
  Transmission Date: 20140414
  Serious: Yes (Death, Hospitalization, Other)
  Sender: FDA-Public Use
  Company Number: JP-ASTRAZENECA-2013SE03477

PATIENT
  Age: 86 Year
  Sex: Male
  Weight: 47.5 kg

DRUGS (17)
  1. SEROQUEL [Suspect]
     Indication: RESTLESSNESS
     Route: 048
     Dates: start: 20121221, end: 20121231
  2. ERYTHROCIN [Interacting]
     Indication: BRONCHIECTASIS
     Route: 048
     Dates: start: 20121227, end: 20130101
  3. ERYTHROCIN [Interacting]
     Indication: BRONCHIECTASIS
     Route: 048
     Dates: start: 20130110, end: 20130121
  4. RISPERDAL [Suspect]
     Indication: RESTLESSNESS
     Route: 048
     Dates: start: 20121221, end: 20121226
  5. VOLTAREN [Suspect]
     Indication: PYREXIA
     Route: 054
     Dates: start: 20121230, end: 20121230
  6. MAXIPIME [Suspect]
     Indication: PNEUMONIA
     Route: 042
     Dates: start: 20121231, end: 20130101
  7. DONEPEZIL HYDROCHLORIDE [Concomitant]
     Indication: DEMENTIA ALZHEIMER^S TYPE
     Dates: start: 20120602, end: 20130121
  8. AMOBAN [Concomitant]
     Indication: INSOMNIA
     Dates: start: 20121221, end: 20130114
  9. CISDYNE [Concomitant]
     Indication: BRONCHIECTASIS
     Dates: start: 20120522, end: 20130121
  10. HOKUNALIN [Concomitant]
     Indication: CHRONIC OBSTRUCTIVE PULMONARY DISEASE
     Dates: start: 20120522
  11. MEROPENEM [Concomitant]
     Indication: PNEUMONIA
     Dates: start: 20130101, end: 20130104
  12. PREDONINE [Concomitant]
     Indication: PNEUMONIA
     Dates: start: 20130101, end: 20130107
  13. SERENACE [Concomitant]
     Dates: start: 20121221, end: 20121221
  14. PIPERACILLIN NA [Concomitant]
     Indication: PNEUMONIA
     Dates: start: 20121229, end: 20121231
  15. POLARAMINE [Concomitant]
     Indication: DRUG ERUPTION
     Dates: start: 20130101, end: 20130101
  16. NEOPHAGEN [Concomitant]
     Indication: DRUG ERUPTION
     Dates: start: 20130101, end: 20130101
  17. TEICOPLANIN [Concomitant]
     Dates: start: 20130325, end: 20130326

REACTIONS (7)
  - Drug interaction [Recovered/Resolved]
  - Pneumonia [Fatal]
  - Rhabdomyolysis [Recovering/Resolving]
  - Renal failure acute [Recovered/Resolved]
  - Drug eruption [Recovered/Resolved]
  - Blood pressure decreased [Recovered/Resolved]
  - Off label use [Unknown]
